FAERS Safety Report 22366106 (Version 1)
Quarter: 2023Q2

REPORT INFORMATION
  Report Type: Spontaneous
  Country: MX (occurrence: MX)
  Receive Date: 20230525
  Receipt Date: 20230525
  Transmission Date: 20230722
  Serious: Yes (Other)
  Sender: FDA-Public Use
  Company Number: MX-ROCHE-3351085

PATIENT
  Age: 38 Year
  Sex: Female
  Weight: 84 kg

DRUGS (8)
  1. CAPECITABINE [Suspect]
     Active Substance: CAPECITABINE
     Indication: Breast cancer
     Route: 048
  2. TRASTUZUMAB [Suspect]
     Active Substance: TRASTUZUMAB
     Indication: Breast cancer
     Dosage: 4 CYCLES
     Dates: end: 20210409
  3. FLUOROURACIL [Concomitant]
     Active Substance: FLUOROURACIL
     Indication: Breast cancer
     Dates: end: 20210409
  4. EPIRUBICIN [Concomitant]
     Active Substance: EPIRUBICIN
     Indication: Breast cancer
     Dates: end: 20210409
  5. CYCLOPHOSPHAMIDE [Concomitant]
     Active Substance: CYCLOPHOSPHAMIDE
     Indication: Breast cancer
     Dates: end: 20210409
  6. DOCETAXEL [Concomitant]
     Active Substance: DOCETAXEL
     Indication: Breast cancer
     Dates: end: 20210409
  7. GEMCITABINE [Concomitant]
     Active Substance: GEMCITABINE
     Indication: Breast cancer
     Dosage: 6 CYCLES
     Dates: end: 20210409
  8. LAPATINIB [Concomitant]
     Active Substance: LAPATINIB
     Indication: Breast cancer

REACTIONS (6)
  - Breast cancer metastatic [Unknown]
  - Autoimmune thyroiditis [Unknown]
  - Ill-defined disorder [Unknown]
  - Breast mass [Unknown]
  - Goitre [Unknown]
  - Dysphagia [Unknown]

NARRATIVE: CASE EVENT DATE: 20210504
